FAERS Safety Report 9601231 (Version 1)
Quarter: 2013Q4

REPORT INFORMATION
  Report Type: Spontaneous
  Country: NL (occurrence: NL)
  Receive Date: 20131005
  Receipt Date: 20131005
  Transmission Date: 20140711
  Serious: Yes (Other)
  Sender: FDA-Public Use
  Company Number: NL-TEVA-434376ISR

PATIENT
  Age: 74 Year
  Sex: Female
  Weight: 60 kg

DRUGS (10)
  1. CITALOPRAM WRAPPED 10MG TABLET [Suspect]
     Dosage: 10 MILLIGRAM DAILY;
     Route: 048
     Dates: start: 20130603, end: 20130828
  2. ROPINIROL TABLET MGA 2MG [Interacting]
     Indication: PARKINSON^S DISEASE
     Dosage: 4 DOSAGE FORMS DAILY; TWICE DAILY 1-2
     Route: 048
     Dates: start: 2010
  3. LEVODOPA/CARBIDOPA TABLET 50/12.5 MG [Interacting]
     Indication: PARKINSON^S DISEASE
     Dosage: 6 DOSAGE FORMS DAILY; DOSAGE FORM = LEVODOPA 50MG, CARBIDOPA 12.5MG
     Route: 048
     Dates: start: 2011
  4. DOMPERIDON TABLET 10MG [Interacting]
     Dosage: 40 MILLIGRAM DAILY;
     Route: 048
     Dates: start: 2011
  5. PROPRANOLOL [Interacting]
     Indication: ANXIETY
     Dosage: 20 MILLIGRAM DAILY;
     Route: 048
     Dates: start: 201305
  6. PANTOPRAZOL TABLET MSR 40MG [Concomitant]
     Dosage: 40 MILLIGRAM DAILY;
     Route: 048
     Dates: start: 20130527
  7. ACETYLSALICYLZUUR DISPERTABLET 80MG [Concomitant]
     Dosage: 80 MILLIGRAM DAILY;
     Route: 048
     Dates: start: 20130527
  8. BISACODYL SUPPOSITORY 10MG [Concomitant]
     Dosage: 10 MILLIGRAM DAILY; WHEN NEEDED ONE PIECE
     Route: 054
     Dates: start: 20130524
  9. METOPROLOL TABLET 50MG [Concomitant]
     Dosage: 50 MILLIGRAM DAILY;
     Route: 048
     Dates: start: 20130527, end: 20130815
  10. RASAGILINE TABLET 1MG [Concomitant]
     Dosage: 1 MILLIGRAM DAILY;
     Route: 048
     Dates: start: 20130527

REACTIONS (2)
  - Hemianopia [Recovered/Resolved]
  - Drug interaction [Recovered/Resolved]
